FAERS Safety Report 13158322 (Version 2)
Quarter: 2017Q1

REPORT INFORMATION
  Report Type: Spontaneous
  Country: IT (occurrence: IT)
  Receive Date: 20170127
  Receipt Date: 20170208
  Transmission Date: 20170428
  Serious: Yes (Other)
  Sender: FDA-Public Use
  Company Number: IT-PFIZER INC-2017037455

PATIENT
  Age: 36 Year
  Sex: Female

DRUGS (1)
  1. BASSADO [Suspect]
     Active Substance: DOXYCYCLINE HYCLATE
     Indication: SYPHILIS
     Dosage: 2 DF, DAILY
     Route: 048

REACTIONS (2)
  - Diarrhoea [Recovered/Resolved with Sequelae]
  - Gingival pain [Recovered/Resolved with Sequelae]

NARRATIVE: CASE EVENT DATE: 20161115
